FAERS Safety Report 17297625 (Version 1)
Quarter: 2020Q1

REPORT INFORMATION
  Report Type: Spontaneous
  Country: CA (occurrence: CA)
  Receive Date: 20200122
  Receipt Date: 20200122
  Transmission Date: 20200409
  Serious: Yes (Other)
  Sender: FDA-Public Use
  Company Number: CA-TEVA-2020-CA-1172435

PATIENT
  Age: 71 Year
  Sex: Female
  Weight: 42 kg

DRUGS (2)
  1. REMICADE [Suspect]
     Active Substance: INFLIXIMAB
     Indication: CROHN^S DISEASE
     Dosage: 57.1429 MILLIGRAM DAILY;
     Route: 042
  2. AMOXICILLIN AND CLAVULANATE POTASSIUM [Suspect]
     Active Substance: AMOXICILLIN\CLAVULANATE POTASSIUM
     Indication: BRONCHITIS
     Route: 065

REACTIONS (8)
  - Mass [Unknown]
  - Decreased appetite [Unknown]
  - Diarrhoea [Unknown]
  - Atelectasis [Unknown]
  - Vascular procedure complication [Unknown]
  - Bronchitis [Unknown]
  - Abdominal pain [Unknown]
  - Angioplasty [Unknown]
